FAERS Safety Report 19165571 (Version 1)
Quarter: 2021Q2

REPORT INFORMATION
  Report Type: Spontaneous
  Country: US (occurrence: US)
  Receive Date: 20210421
  Receipt Date: 20210421
  Transmission Date: 20210717
  Serious: No
  Sender: FDA-Public Use
  Company Number: US-GILEAD-2021-0526114

PATIENT
  Age: 64 Year
  Sex: Male

DRUGS (1)
  1. BIKTARVY [Suspect]
     Active Substance: BICTEGRAVIR SODIUM\EMTRICITABINE\TENOFOVIR ALAFENAMIDE FUMARATE
     Indication: HIV INFECTION
     Dosage: UNK
     Route: 065
     Dates: start: 202101

REACTIONS (4)
  - Poor quality sleep [Recovering/Resolving]
  - Tachyphrenia [Recovering/Resolving]
  - Abnormal dreams [Recovering/Resolving]
  - CD4 lymphocytes decreased [Unknown]

NARRATIVE: CASE EVENT DATE: 202104
